FAERS Safety Report 13618876 (Version 6)
Quarter: 2017Q3

REPORT INFORMATION
  Report Type: Spontaneous
  Country: US (occurrence: US)
  Receive Date: 20170606
  Receipt Date: 20170816
  Transmission Date: 20171127
  Serious: No
  Sender: FDA-Public Use
  Company Number: US-ACTELION-A-NJ2017-154794

PATIENT
  Age: 68 Year
  Sex: Male
  Weight: 134.69 kg

DRUGS (4)
  1. UPTRAVI [Suspect]
     Active Substance: SELEXIPAG
     Dosage: 1600 MCG, BID
     Route: 048
  2. UPTRAVI [Suspect]
     Active Substance: SELEXIPAG
     Dosage: 200 MCG, BID
     Route: 048
  3. SILDENAFIL. [Concomitant]
     Active Substance: SILDENAFIL
  4. UPTRAVI [Suspect]
     Active Substance: SELEXIPAG
     Indication: PULMONARY ARTERIAL HYPERTENSION
     Dosage: 400 MCG, BID
     Route: 048

REACTIONS (15)
  - Pain [Unknown]
  - Dyspnoea [Unknown]
  - Pain in jaw [Unknown]
  - Chills [Unknown]
  - Arthritis [Unknown]
  - Nausea [Unknown]
  - Headache [Unknown]
  - Restless legs syndrome [Unknown]
  - Decreased appetite [Unknown]
  - Increased appetite [Unknown]
  - Arthralgia [Unknown]
  - Asthenia [Unknown]
  - Condition aggravated [Unknown]
  - Lethargy [Unknown]
  - Fatigue [Unknown]
